FAERS Safety Report 25851347 (Version 1)
Quarter: 2025Q3

REPORT INFORMATION
  Report Type: Spontaneous
  Country: US (occurrence: US)
  Receive Date: 20250926
  Receipt Date: 20250926
  Transmission Date: 20251020
  Serious: No
  Sender: ABBVIE
  Company Number: US-ABBVIE-6465821

PATIENT
  Age: 84 Year
  Sex: Female

DRUGS (1)
  1. URSO [Suspect]
     Active Substance: URSODIOL
     Indication: Product used for unknown indication
     Route: 065
     Dates: end: 202509

REACTIONS (1)
  - Expired product administered [Unknown]
